FAERS Safety Report 5717682-4 (Version None)
Quarter: 2008Q2

REPORT INFORMATION
  Report Type: 
  Country: None (occurrence: None)
  Receive Date: 20080425
  Receipt Date: 20080421
  Transmission Date: 20081010
  Serious: Yes (Death)
  Sender: FDA-Public Use
  Company Number: KR-ROCHE-559793

PATIENT
  Sex: Male
  Weight: 64 kg

DRUGS (3)
  1. CAPECITABINE [Suspect]
     Route: 048
     Dates: start: 20071031
  2. ERLOTINIB [Suspect]
     Route: 048
     Dates: start: 20071031
  3. GEMCITABINE [Suspect]
     Route: 042
     Dates: start: 20071031

REACTIONS (6)
  - CEREBRAL INFARCTION [None]
  - DEATH [None]
  - DISEASE PROGRESSION [None]
  - EMBOLISM [None]
  - HEADACHE [None]
  - LOSS OF CONSCIOUSNESS [None]
